FAERS Safety Report 16725915 (Version 2)
Quarter: 2019Q3

REPORT INFORMATION
  Report Type: Report from Study
  Country: AT (occurrence: AT)
  Receive Date: 20190821
  Receipt Date: 20190823
  Transmission Date: 20191005
  Serious: Yes (Hospitalization)
  Sender: FDA-Public Use
  Company Number: AT-ROCHE-2382518

PATIENT
  Age: 58 Year
  Sex: Female
  Weight: 61.5 kg

DRUGS (3)
  1. OBINUTUZUMAB. [Suspect]
     Active Substance: OBINUTUZUMAB
     Indication: CHRONIC LYMPHOCYTIC LEUKAEMIA
     Dosage: MOST RECENT DOSE OF OBINUTUZUMAB: 23/JUL/2019
     Route: 042
     Dates: start: 20190528
  2. VENETOCLAX. [Suspect]
     Active Substance: VENETOCLAX
     Indication: CHRONIC LYMPHOCYTIC LEUKAEMIA
     Dosage: MOST RECEBNT DOSE OF VENETOCLAX: 12/AUG/2019
     Route: 048
     Dates: start: 20190528
  3. IBRUTINIB [Suspect]
     Active Substance: IBRUTINIB
     Indication: CHRONIC LYMPHOCYTIC LEUKAEMIA
     Route: 048
     Dates: start: 20190528, end: 20190623

REACTIONS (1)
  - Vocal cord paresis [Not Recovered/Not Resolved]

NARRATIVE: CASE EVENT DATE: 20190813
